FAERS Safety Report 8450371 (Version 3)
Quarter: 2012Q4

REPORT INFORMATION
  Report Type: 
  Country: US (occurrence: US)
  Receive Date: 20120309
  Receipt Date: 20121217
  Transmission Date: 20130627
  Serious: Yes (Death, Other)
  Sender: FDA-Public Use
  Company Number: US-NAPPMUNDI-USA-2011-0078504

PATIENT
  Age: 44 Year
  Sex: Female

DRUGS (1)
  1. BUTRANS [Suspect]
     Indication: PAIN MANAGEMENT
     Route: 062

REACTIONS (5)
  - Post procedural pulmonary embolism [Fatal]
  - Surgery [Unknown]
  - Oral discomfort [Unknown]
  - Oral pruritus [Recovered/Resolved]
  - Oedema mouth [Unknown]
